FAERS Safety Report 8903325 (Version 1)
Quarter: 2012Q4

REPORT INFORMATION
  Report Type: 
  Country: US (occurrence: US)
  Receive Date: 20121112
  Receipt Date: 20121112
  Transmission Date: 20130627
  Serious: Yes (Other)
  Sender: FDA-Public Use
  Company Number: US-AMGEN-USASP2012069461

PATIENT
  Age: 44 Year
  Sex: Female
  Weight: 111.11 kg

DRUGS (2)
  1. ENBREL [Suspect]
     Indication: FIBROMYALGIA
     Dosage: 50 mg, qwk
     Dates: start: 200505, end: 201209
  2. ENBREL [Suspect]
     Indication: ANKYLOSING SPONDYLITIS

REACTIONS (6)
  - Diarrhoea haemorrhagic [Recovered/Resolved]
  - Irritable bowel syndrome [Recovered/Resolved]
  - Epistaxis [Recovered/Resolved]
  - Impaired healing [Recovered/Resolved]
  - Injection site pain [Recovered/Resolved]
  - Injection site irritation [Unknown]
